FAERS Safety Report 7687357-3 (Version None)
Quarter: 2011Q3

REPORT INFORMATION
  Report Type: 
  Country: None (occurrence: None)
  Receive Date: 20110816
  Receipt Date: 20110811
  Transmission Date: 20111222
  Serious: No
  Sender: FDA-Public Use
  Company Number: US-BAYER-2011-072332

PATIENT
  Age: 56 Year
  Sex: Male

DRUGS (2)
  1. MAGNEVIST [Suspect]
     Indication: NUCLEAR MAGNETIC RESONANCE IMAGING
     Dosage: 30 ML, ONCE
     Dates: start: 20110811, end: 20110811
  2. MAGNEVIST [Suspect]
     Indication: CAROTID ARTERY DISSECTION

REACTIONS (3)
  - BURNING SENSATION [None]
  - EYE IRRITATION [None]
  - FLUSHING [None]
